FAERS Safety Report 14073620 (Version 1)
Quarter: 2017Q4

REPORT INFORMATION
  Report Type: Spontaneous
  Country: FR (occurrence: FR)
  Receive Date: 20171011
  Receipt Date: 20171011
  Transmission Date: 20180321
  Serious: Yes (Hospitalization)
  Sender: FDA-Public Use
  Company Number: FR-BAYER-2017-188914

PATIENT
  Age: 78 Year
  Sex: Male

DRUGS (2)
  1. STIVARGA [Suspect]
     Active Substance: REGORAFENIB
     Dosage: 2 TABLETS PER DAY
  2. STIVARGA [Suspect]
     Active Substance: REGORAFENIB
     Dosage: 4 TABLETS IN THE MORNING

REACTIONS (3)
  - Dehydration [Recovered/Resolved]
  - Diarrhoea [None]
  - Diarrhoea [Recovered/Resolved]
